APPROVED DRUG PRODUCT: SELEXIPAG
Active Ingredient: SELEXIPAG
Strength: 0.6MG
Dosage Form/Route: TABLET;ORAL
Application: A214414 | Product #003 | TE Code: AB
Applicant: ALEMBIC PHARMACEUTICALS LTD
Approved: Oct 11, 2023 | RLD: No | RS: No | Type: RX